FAERS Safety Report 6392138-7 (Version None)
Quarter: 2009Q4

REPORT INFORMATION
  Report Type: 
  Country: None (occurrence: None)
  Receive Date: 20091007
  Receipt Date: 20090929
  Transmission Date: 20100525
  Serious: Yes (Disabling)
  Sender: FDA-Public Use
  Company Number: BR-ABBOTT-09P-020-0600067-00

PATIENT
  Sex: Female

DRUGS (5)
  1. HUMIRA [Suspect]
     Indication: DRUG USE FOR UNKNOWN INDICATION
  2. GARDENAL [Concomitant]
     Indication: SYNCOPE
     Route: 048
  3. HIDANTAL [Concomitant]
     Indication: SYNCOPE
     Route: 048
  4. UNKNOWN DRUG [Concomitant]
     Indication: MUSCULOSKELETAL PAIN
  5. UNKNOWN DRUG [Concomitant]
     Indication: PAIN

REACTIONS (1)
  - ABASIA [None]
